FAERS Safety Report 9959588 (Version 1)
Quarter: 2014Q1

REPORT INFORMATION
  Report Type: Spontaneous
  Country: US (occurrence: US)
  Receive Date: 20140305
  Receipt Date: 20140305
  Transmission Date: 20141002
  Serious: No
  Sender: FDA-Public Use
  Company Number: US-ABBVIE-13P-163-1102845-00

PATIENT
  Age: 60 Year
  Sex: Female
  Weight: 99.88 kg

DRUGS (5)
  1. HUMIRA [Suspect]
     Indication: PSORIATIC ARTHROPATHY
     Dates: start: 201209
  2. METHOTREXATE [Suspect]
     Indication: PSORIATIC ARTHROPATHY
     Dates: start: 201209
  3. NABUMETONE [Suspect]
     Indication: ARTHRITIS
     Dates: start: 201209
  4. QUINAPRIL [Concomitant]
     Indication: BLOOD PRESSURE
  5. CELEXA [Concomitant]
     Indication: ANTIDEPRESSANT THERAPY

REACTIONS (3)
  - Hyperhidrosis [Not Recovered/Not Resolved]
  - Device malfunction [Unknown]
  - Drug dose omission [Unknown]
